FAERS Safety Report 16263588 (Version 1)
Quarter: 2019Q2

REPORT INFORMATION
  Report Type: Spontaneous
  Country: US (occurrence: US)
  Receive Date: 20190327
  Receipt Date: 20190327
  Transmission Date: 20190711
  Serious: No
  Sender: FDA-Public Use
  Company Number: None

PATIENT
  Age: 63 Year
  Sex: Female

DRUGS (1)
  1. ENBREL [Suspect]
     Active Substance: ETANERCEPT
     Indication: RHEUMATOID ARTHRITIS
     Route: 058
     Dates: start: 20190207, end: 20190321

REACTIONS (7)
  - Injection site erythema [None]
  - Injection site reaction [None]
  - Injection site swelling [None]
  - Nausea [None]
  - Vomiting [None]
  - Arthralgia [None]
  - Injection site induration [None]

NARRATIVE: CASE EVENT DATE: 20190207
